FAERS Safety Report 10794074 (Version 2)
Quarter: 2022Q1

REPORT INFORMATION
  Report Type: Spontaneous
  Country: US (occurrence: US)
  Receive Date: 20150213
  Receipt Date: 20220117
  Transmission Date: 20220424
  Serious: Yes (Death, Other)
  Sender: FDA-Public Use
  Company Number: CHPA2015US002127

PATIENT
  Age: 32 Year
  Sex: Female

DRUGS (7)
  1. DEXTROMETHORPHAN HYDROBROMIDE [Suspect]
     Active Substance: DEXTROMETHORPHAN HYDROBROMIDE
     Indication: Product used for unknown indication
     Dosage: UNK
     Route: 051
  2. COCAINE [Suspect]
     Active Substance: COCAINE
     Indication: Product used for unknown indication
     Dosage: UNK
     Route: 051
  3. DIACETYLMORPHINE HYDROCHLORIDE [Suspect]
     Active Substance: DIACETYLMORPHINE HYDROCHLORIDE
     Indication: Product used for unknown indication
     Dosage: UNK
     Route: 051
  4. FLUOXETINE [Suspect]
     Active Substance: FLUOXETINE HYDROCHLORIDE
     Indication: Product used for unknown indication
     Dosage: UNK
     Route: 051
  5. CITALOPRAM [Suspect]
     Active Substance: CITALOPRAM HYDROBROMIDE
     Indication: Product used for unknown indication
     Dosage: UNK
     Route: 051
  6. HYDROXYZINE [Suspect]
     Active Substance: HYDROXYZINE HYDROCHLORIDE
     Indication: Product used for unknown indication
     Dosage: UNK
     Route: 051
  7. QUININE [Suspect]
     Active Substance: QUININE
     Indication: Product used for unknown indication
     Dosage: UNK
     Route: 051

REACTIONS (3)
  - Drug abuse [Fatal]
  - Cardio-respiratory arrest [Unknown]
  - Respiratory arrest [Unknown]
